FAERS Safety Report 6653815-3 (Version None)
Quarter: 2010Q1

REPORT INFORMATION
  Report Type: 
  Country: None (occurrence: None)
  Receive Date: 20100326
  Receipt Date: 20100324
  Transmission Date: 20100710
  Serious: Yes (Hospitalization)
  Sender: FDA-Public Use
  Company Number: B0617786A

PATIENT
  Sex: Female
  Weight: 83.6 kg

DRUGS (6)
  1. LAPATINIB [Suspect]
     Indication: BREAST CANCER
     Dosage: 1000MG PER DAY
     Route: 048
     Dates: start: 20090925
  2. TRASTUZUMAB [Suspect]
     Indication: BREAST CANCER
     Dosage: 2MGK WEEKLY
     Route: 042
     Dates: start: 20090924
  3. PACLITAXEL [Suspect]
     Indication: BREAST CANCER
     Dosage: 80MGM2 WEEKLY
     Route: 042
     Dates: start: 20090924
  4. NEXIUM [Concomitant]
     Indication: DYSPEPSIA
     Dosage: 40MG PER DAY
     Route: 048
     Dates: start: 20090501
  5. ORDINE [Concomitant]
     Indication: COUGH
     Dosage: 5MG FOUR TIMES PER DAY
     Route: 048
     Dates: start: 20091101
  6. SYMBICORT [Concomitant]
     Indication: COUGH
     Dates: start: 20091123

REACTIONS (7)
  - COUGH [None]
  - DEHYDRATION [None]
  - DYSPNOEA [None]
  - LOWER RESPIRATORY TRACT INFECTION [None]
  - LUNG INFILTRATION [None]
  - PNEUMONIA [None]
  - PYREXIA [None]
